FAERS Safety Report 4607221-3 (Version None)
Quarter: 2005Q1

REPORT INFORMATION
  Report Type: 
  Country: None (occurrence: None)
  Receive Date: 20050310
  Receipt Date: 20050223
  Transmission Date: 20050727
  Serious: Yes (Hospitalization, Other)
  Sender: FDA-Public Use
  Company Number: 2005BI000787

PATIENT
  Age: 43 Year
  Sex: Female
  Weight: 70.3075 kg

DRUGS (6)
  1. AVONEX [Suspect]
     Indication: MULTIPLE SCLEROSIS
     Dosage: 30 UG;QW;IM
     Route: 030
     Dates: start: 19970101, end: 19980101
  2. DEPAKOTE [Concomitant]
  3. DITROPAN XL [Concomitant]
  4. NEURONTIN [Concomitant]
  5. ALPRAZOLAM [Concomitant]
  6. ABILIFY [Concomitant]

REACTIONS (3)
  - CONVULSION [None]
  - GALLBLADDER PAIN [None]
  - RHEUMATOID ARTHRITIS [None]
